FAERS Safety Report 5133209-2 (Version None)
Quarter: 2006Q4

REPORT INFORMATION
  Report Type: 
  Country: None (occurrence: None)
  Receive Date: 20061018
  Receipt Date: 20061006
  Transmission Date: 20070319
  Serious: Yes (Other)
  Sender: FDA-Public Use
  Company Number: 14949

PATIENT
  Age: 41 Year
  Sex: Female
  Weight: 60 kg

DRUGS (8)
  1. ACYCLOVIR [Suspect]
     Indication: HERPES ZOSTER
     Dosage: 800 MG OTH
     Route: 050
     Dates: start: 20060821, end: 20060828
  2. CETIRIZINE HCL [Concomitant]
  3. DERMOL [Concomitant]
  4. DIPROBASE [Concomitant]
  5. EPADERM [Concomitant]
  6. SERETIDE [Concomitant]
  7. VENTOLIN [Concomitant]
  8. WHITE SOFT PARAFFIN [Concomitant]

REACTIONS (1)
  - ALOPECIA [None]
